FAERS Safety Report 9330763 (Version 1)
Quarter: 2013Q2

REPORT INFORMATION
  Report Type: Spontaneous
  Country: JP (occurrence: JP)
  Receive Date: 20130605
  Receipt Date: 20130605
  Transmission Date: 20140414
  Serious: Yes (Other)
  Sender: FDA-Public Use
  Company Number: JP-JNJFOC-20130520353

PATIENT
  Age: 83 Year
  Sex: Female

DRUGS (1)
  1. XARELTO [Suspect]
     Indication: THROMBOSIS PROPHYLAXIS
     Route: 048
     Dates: start: 20130423, end: 20130516

REACTIONS (3)
  - Hepatic function abnormal [Recovering/Resolving]
  - C-reactive protein increased [Recovering/Resolving]
  - Eosinophil count increased [Recovering/Resolving]
